FAERS Safety Report 8113847-5 (Version None)
Quarter: 2012Q1

REPORT INFORMATION
  Report Type: 
  Country: None (occurrence: None)
  Receive Date: 20120203
  Receipt Date: 20120201
  Transmission Date: 20120608
  Serious: Yes (Death, Hospitalization, Other)
  Sender: FDA-Public Use
  Company Number: PHEH2009US11085

PATIENT
  Sex: Female

DRUGS (56)
  1. POTASSIUM CHLORIDE [Concomitant]
  2. MILK OF MAGNESIA TAB [Concomitant]
  3. ATIVAN [Concomitant]
  4. CARBOPLATIN [Concomitant]
  5. HERCEPTIN [Concomitant]
  6. SENNA-GEN [Concomitant]
  7. ZESTRIL [Concomitant]
  8. ROZEREM [Concomitant]
  9. ANASTROZOLE [Concomitant]
  10. CYTOXAN [Concomitant]
  11. LANTUS [Concomitant]
  12. NEURONTIN [Concomitant]
     Dosage: 600 MG, TID
     Route: 048
  13. DOLOPHINE HCL [Concomitant]
  14. AMBIEN [Concomitant]
  15. IBUPROFEN [Concomitant]
     Dosage: 800 MG, TID
  16. MAGNESIUM SULFATE [Concomitant]
  17. FENTANYL CITRATE [Concomitant]
  18. CIPROFLOXACIN [Concomitant]
  19. LACTULOSE [Concomitant]
  20. MAALOX                                  /USA/ [Concomitant]
  21. DILAUDID [Concomitant]
  22. INAPSINE [Concomitant]
  23. VICODIN [Concomitant]
  24. BUPROPION HYDROCHLORIDE [Concomitant]
     Dosage: 150 MG, QD
     Route: 048
  25. PREDNISONE TAB [Concomitant]
  26. AMITRIPTYLINE HCL [Concomitant]
  27. ZOMETA [Suspect]
     Indication: BREAST CANCER METASTATIC
     Route: 042
     Dates: end: 20090601
  28. DEXAMETHASONE [Concomitant]
  29. ADRIAMYCIN PFS [Concomitant]
  30. MEGACE [Concomitant]
  31. CLONAZEPAM [Concomitant]
     Dosage: 0.5 MG, QD
  32. GABAPENTIN [Concomitant]
     Dosage: 600 MG, TID
  33. KLOR-CON [Concomitant]
  34. DURAGESIC-100 [Concomitant]
  35. PANTOPRAZOLE [Concomitant]
  36. SENNOSIDE [Concomitant]
  37. METAMUCIL-2 [Concomitant]
  38. ACETAMINOPHEN [Concomitant]
  39. MAGNESIUM CITRATE [Concomitant]
  40. TORADOL [Concomitant]
  41. DULCOLAX [Concomitant]
  42. GLIPIZIDE [Concomitant]
     Dosage: 10 MG, QD
     Route: 048
  43. XELODA [Concomitant]
  44. BUPIVACAINE HCL [Concomitant]
  45. WELLBUTRIN [Concomitant]
  46. DOCUSATE [Concomitant]
  47. METHADONE HYDROCHLORIDE [Concomitant]
  48. HUMALOG [Concomitant]
  49. PROMETHAZINE HYDROCHLORIDE [Concomitant]
     Dosage: 25 MG, QID
     Route: 048
  50. METOCLOPRAMIDE [Concomitant]
  51. PAXIL [Concomitant]
  52. TAXOL [Concomitant]
  53. ARIMIDEX [Concomitant]
  54. LISINOPRIL [Concomitant]
     Dosage: 10 MG, QD
     Route: 048
  55. TYKERB [Concomitant]
  56. LIDODERM [Concomitant]

REACTIONS (72)
  - HYPONATRAEMIA [None]
  - HYPOKALAEMIA [None]
  - BACK PAIN [None]
  - INJURY [None]
  - METASTASES TO LIVER [None]
  - DEPRESSION [None]
  - THROMBOCYTOSIS [None]
  - URINARY TRACT INFECTION [None]
  - DYSPHAGIA [None]
  - SINUSITIS [None]
  - DEATH [None]
  - IMPAIRED HEALING [None]
  - METASTASES TO OVARY [None]
  - PLEURAL EFFUSION [None]
  - HYPERTENSION [None]
  - DYSPNOEA EXERTIONAL [None]
  - DYSPNOEA [None]
  - SERRATIA SEPSIS [None]
  - MUSCULOSKELETAL PAIN [None]
  - ANHEDONIA [None]
  - NEOPLASM PROGRESSION [None]
  - METASTASES TO LUNG [None]
  - RESPIRATORY FAILURE [None]
  - OTITIS MEDIA [None]
  - CONSTIPATION [None]
  - THYROID DISORDER [None]
  - INGROWING NAIL [None]
  - PELVIC PAIN [None]
  - PAIN [None]
  - MOUTH ULCERATION [None]
  - OSTEOSCLEROSIS [None]
  - DEEP VEIN THROMBOSIS [None]
  - HEPATIC STEATOSIS [None]
  - RED BLOOD CELL SEDIMENTATION RATE INCREASED [None]
  - DYSPEPSIA [None]
  - PARAESTHESIA [None]
  - HYPOAESTHESIA [None]
  - SPINAL COLUMN STENOSIS [None]
  - UPPER RESPIRATORY TRACT INFECTION [None]
  - ELECTROLYTE IMBALANCE [None]
  - SKIN ULCER [None]
  - OSTEONECROSIS OF JAW [None]
  - ADNEXA UTERI MASS [None]
  - TYPE 2 DIABETES MELLITUS [None]
  - C-REACTIVE PROTEIN INCREASED [None]
  - PYREXIA [None]
  - ABDOMINAL PAIN [None]
  - BLOOD CREATINE PHOSPHOKINASE MB INCREASED [None]
  - MALIGNANT PLEURAL EFFUSION [None]
  - FEBRILE NEUTROPENIA [None]
  - ANXIETY [None]
  - BONE DISORDER [None]
  - PANCYTOPENIA [None]
  - PLEURAL FIBROSIS [None]
  - PNEUMONIA [None]
  - LATEX ALLERGY [None]
  - VOMITING [None]
  - ERYTHEMA [None]
  - DEHYDRATION [None]
  - NAUSEA [None]
  - OTITIS EXTERNA [None]
  - IMPETIGO [None]
  - PAIN IN EXTREMITY [None]
  - GASTROOESOPHAGEAL REFLUX DISEASE [None]
  - ASCITES [None]
  - OSTEOARTHRITIS [None]
  - NEOPLASM MALIGNANT [None]
  - DEVICE RELATED INFECTION [None]
  - OBESITY [None]
  - INSOMNIA [None]
  - COUGH [None]
  - GOUT [None]
